FAERS Safety Report 20587719 (Version 1)
Quarter: 2022Q1

REPORT INFORMATION
  Report Type: Report from Study
  Country: US (occurrence: US)
  Receive Date: 20220314
  Receipt Date: 20220314
  Transmission Date: 20220423
  Serious: Yes (Other)
  Sender: FDA-Public Use
  Company Number: US-AMGEN-USASL2022038867

PATIENT
  Age: 61 Year
  Sex: Male

DRUGS (1)
  1. OTEZLA [Suspect]
     Active Substance: APREMILAST
     Indication: Psoriatic arthropathy
     Dosage: 30 MILLIGRAM, BID
     Route: 065
     Dates: end: 20220303

REACTIONS (9)
  - Gastrointestinal oedema [Unknown]
  - Loss of consciousness [Unknown]
  - Abdominal distension [Recovering/Resolving]
  - Swelling [Recovering/Resolving]
  - Abdominal rigidity [Recovered/Resolved]
  - Faeces soft [Unknown]
  - Frequent bowel movements [Unknown]
  - Abdominal pain upper [Recovering/Resolving]
  - Respiratory disorder [Recovered/Resolved]

NARRATIVE: CASE EVENT DATE: 20220302
